FAERS Safety Report 17222188 (Version 1)
Quarter: 2020Q1

REPORT INFORMATION
  Report Type: Spontaneous
  Country: BR (occurrence: BR)
  Receive Date: 20200101
  Receipt Date: 20200101
  Transmission Date: 20200409
  Serious: Yes (Disabling)
  Sender: FDA-Public Use
  Company Number: BR-ALLERGAN-1952867US

PATIENT
  Sex: Male

DRUGS (3)
  1. MEDICATION TO CONTROL PRESSURE [Concomitant]
  2. OPTIVE [Concomitant]
     Active Substance: CARBOXYMETHYLCELLULOSE SODIUM\GLYCERIN
     Indication: EYE LUBRICATION THERAPY
     Dosage: UNK
     Route: 047
  3. ATROPINA 0.5% [Suspect]
     Active Substance: ATROPINE SULFATE
     Indication: PRODUCT USED FOR UNKNOWN INDICATION
     Dosage: 4 GTT, SINGLE
     Route: 047
     Dates: start: 20191219, end: 20191219

REACTIONS (3)
  - Wrong product administered [Unknown]
  - Blindness transient [Recovering/Resolving]
  - Mydriasis [Recovering/Resolving]
